FAERS Safety Report 9146224 (Version 1)
Quarter: 2013Q1

REPORT INFORMATION
  Report Type: Spontaneous
  Country: IT (occurrence: IT)
  Receive Date: 20130307
  Receipt Date: 20130307
  Transmission Date: 20140127
  Serious: Yes (Death)
  Sender: FDA-Public Use
  Company Number: IT-PFIZER INC-2013076174

PATIENT
  Age: 72 Year
  Sex: Female

DRUGS (3)
  1. TIGECYCLINE [Suspect]
     Indication: KLEBSIELLA INFECTION
     Dosage: 100 MG DAILY
     Route: 042
     Dates: start: 20130220
  2. MEROPENEM [Suspect]
     Indication: URINARY TRACT INFECTION
     Dosage: 1 G DAILY
     Route: 042
     Dates: start: 20130220
  3. COLISTIN [Suspect]
     Indication: SEPSIS
     Dosage: 1000000 IU, UNK
     Route: 042
     Dates: start: 20130220

REACTIONS (2)
  - Neutropenia [Fatal]
  - Natural killer T cell count increased [Fatal]
